FAERS Safety Report 9492104 (Version 1)
Quarter: 2013Q3

REPORT INFORMATION
  Report Type: Spontaneous
  Country: GB (occurrence: GB)
  Receive Date: 20130830
  Receipt Date: 20130830
  Transmission Date: 20140515
  Serious: Yes (Other)
  Sender: FDA-Public Use
  Company Number: GB-JNJFOC-20130810578

PATIENT
  Sex: Male

DRUGS (1)
  1. ABIRATERONE ACETATE [Suspect]
     Indication: PROSTATE CANCER
     Route: 048

REACTIONS (6)
  - Sarcopenia [Unknown]
  - Toxicity to various agents [Unknown]
  - Prostate cancer [Unknown]
  - Lipoatrophy [Recovering/Resolving]
  - Fat tissue decreased [Recovering/Resolving]
  - Body mass index decreased [Recovering/Resolving]
